FAERS Safety Report 5402021-9 (Version None)
Quarter: 2007Q3

REPORT INFORMATION
  Report Type: 
  Country: None (occurrence: None)
  Receive Date: 20070726
  Receipt Date: 20070716
  Transmission Date: 20080115
  Serious: Yes (Other)
  Sender: FDA-Public Use
  Company Number: 2007AL002909

PATIENT
  Age: 65 Year
  Sex: Female

DRUGS (6)
  1. SERTRALINE HCL [Suspect]
     Indication: DEPRESSION
     Dosage: 25MG;QD
     Dates: start: 20070208
  2. PROVIGIL [Concomitant]
  3. LANSOPRAZOLE [Concomitant]
  4. RAMIPRIL [Concomitant]
  5. SINEMET [Concomitant]
  6. DANTROLENE SODIUM [Concomitant]

REACTIONS (3)
  - BLOOD SODIUM INCREASED [None]
  - HYPERTENSION [None]
  - SOMNOLENCE [None]
